FAERS Safety Report 14519418 (Version 2)
Quarter: 2018Q2

REPORT INFORMATION
  Report Type: Spontaneous
  Country: US (occurrence: US)
  Receive Date: 20180212
  Receipt Date: 20180427
  Transmission Date: 20180711
  Serious: Yes (Hospitalization, Other)
  Sender: FDA-Public Use
  Company Number: US-JNJFOC-20180213750

PATIENT
  Age: 56 Year
  Sex: Male

DRUGS (2)
  1. INVOKANA [Suspect]
     Active Substance: CANAGLIFLOZIN
     Indication: DIABETES MELLITUS
     Route: 048
     Dates: start: 20141017, end: 201601
  2. METFORMIN [Suspect]
     Active Substance: METFORMIN HYDROCHLORIDE
     Indication: DIABETES MELLITUS
     Route: 065
     Dates: end: 201603

REACTIONS (7)
  - Toe amputation [Unknown]
  - Septic shock [Unknown]
  - Diabetic ketoacidosis [Recovered/Resolved]
  - Infection [Unknown]
  - Osteomyelitis [Unknown]
  - Streptococcal bacteraemia [Unknown]
  - Impaired healing [Unknown]

NARRATIVE: CASE EVENT DATE: 20160315
